FAERS Safety Report 21739181 (Version 2)
Quarter: 2023Q1

REPORT INFORMATION
  Report Type: Report from Study
  Country: CA (occurrence: CA)
  Receive Date: 20221216
  Receipt Date: 20230106
  Transmission Date: 20230417
  Serious: Yes (Other)
  Sender: FDA-Public Use
  Company Number: CA-ABBVIE-4237857

PATIENT
  Sex: Male

DRUGS (1)
  1. RINVOQ [Suspect]
     Active Substance: UPADACITINIB
     Indication: Psoriatic arthropathy
     Dosage: LAST ADMIN DATE WAS AN UNKNOWN DATE IN 2022.
     Route: 048
     Dates: start: 20220731

REACTIONS (5)
  - Surgery [Unknown]
  - Immune system disorder [Unknown]
  - Medical device site scar [Recovering/Resolving]
  - Benign neoplasm of skin [Unknown]
  - Impaired healing [Unknown]
